FAERS Safety Report 17517070 (Version 1)
Quarter: 2020Q1

REPORT INFORMATION
  Report Type: Spontaneous
  Country: US (occurrence: US)
  Receive Date: 20200307
  Receipt Date: 20200307
  Transmission Date: 20200409
  Serious: Yes (Disabling)
  Sender: FDA-Public Use
  Company Number: None

PATIENT
  Age: 41 Year
  Sex: Female
  Weight: 121.5 kg

DRUGS (24)
  1. LASIX [Concomitant]
     Active Substance: FUROSEMIDE
  2. CLONIDINE 20MG [Concomitant]
  3. LYRICA [Concomitant]
     Active Substance: PREGABALIN
  4. EMGALITY [Concomitant]
     Active Substance: GALCANEZUMAB-GNLM
  5. EFFEXOR XR 187.5MG [Concomitant]
  6. CELLULAR COMPLEX [Concomitant]
  7. EPI PIN [Concomitant]
  8. VITAMIN B12 [Concomitant]
     Active Substance: CYANOCOBALAMIN
  9. MULTI VITAMIN [Concomitant]
     Active Substance: VITAMINS
  10. VISTARIL [Concomitant]
     Active Substance: HYDROXYZINE PAMOATE
  11. BOTOX [Concomitant]
     Active Substance: ONABOTULINUMTOXINA
  12. CLONAZEPAM 1MG [Concomitant]
     Active Substance: CLONAZEPAM
  13. ACYCLOVIR 400MG [Concomitant]
     Active Substance: ACYCLOVIR
  14. EMGALITY [Suspect]
     Active Substance: GALCANEZUMAB-GNLM
     Indication: MIGRAINE
     Dosage: ?          QUANTITY:1 INJECTION(S);OTHER FREQUENCY:ONCE MONTHLY;OTHER ROUTE:SUBCUTANEOUSLY?
     Dates: start: 20191201, end: 20200305
  15. ZYZAL 5MG [Concomitant]
  16. SPIRONOLACTONE 50MG [Concomitant]
     Active Substance: SPIRONOLACTONE
  17. TORODOL IM 6MG/2ML [Concomitant]
  18. ZOFRAN MLT 8MG PRN [Concomitant]
  19. IMITREX 6MG [Concomitant]
  20. FLAXSEED OIL PILL [Concomitant]
  21. OMEGA 3/6/9 [Concomitant]
  22. FLONASE [Concomitant]
     Active Substance: FLUTICASONE PROPIONATE
  23. CALCIUM [Concomitant]
     Active Substance: CALCIUM
  24. D3 DROPS 2000 IU [Concomitant]

REACTIONS (4)
  - Fibromyalgia [None]
  - Flushing [None]
  - Weight increased [None]
  - Photosensitivity reaction [None]

NARRATIVE: CASE EVENT DATE: 20191226
